FAERS Safety Report 7792771-1 (Version None)
Quarter: 2011Q3

REPORT INFORMATION
  Report Type: 
  Country: None (occurrence: None)
  Receive Date: 20110930
  Receipt Date: 20110930
  Transmission Date: 20111222
  Serious: Yes (Other)
  Sender: FDA-Public Use
  Company Number: None

PATIENT
  Sex: Female
  Weight: 72.5755 kg

DRUGS (1)
  1. SEROQUEL XR [Suspect]
     Indication: ANXIETY
     Dosage: 150 MG 1X PER DAY
     Dates: start: 20110401, end: 20110801

REACTIONS (1)
  - TARDIVE DYSKINESIA [None]
